FAERS Safety Report 5367745-0 (Version None)
Quarter: 2007Q2

REPORT INFORMATION
  Report Type: 
  Country: None (occurrence: None)
  Receive Date: 20070622
  Receipt Date: 20070222
  Transmission Date: 20071010
  Serious: No
  Sender: FDA-Public Use
  Company Number: US-ASTRAZENECA-2007UW03461

PATIENT
  Age: 76 Year
  Sex: Female

DRUGS (5)
  1. PULMICORT [Suspect]
     Indication: CHRONIC OBSTRUCTIVE PULMONARY DISEASE
     Route: 055
     Dates: start: 20040101
  2. LISINOPRIL [Concomitant]
     Route: 048
  3. CARDIA XT [Concomitant]
  4. LIPITOR [Concomitant]
  5. COMBIVENT [Concomitant]

REACTIONS (1)
  - MALAISE [None]
